FAERS Safety Report 15640660 (Version 1)
Quarter: 2018Q4

REPORT INFORMATION
  Report Type: Report from Study
  Country: US (occurrence: US)
  Receive Date: 20181120
  Receipt Date: 20181120
  Transmission Date: 20190205
  Serious: Yes (Hospitalization)
  Sender: FDA-Public Use
  Company Number: US-SA-2018SA315861

PATIENT
  Age: 61 Year
  Sex: Male

DRUGS (1)
  1. INSULIN GLULISINE [Suspect]
     Active Substance: INSULIN GLULISINE
     Indication: DIABETES MELLITUS
     Dosage: 50 U, QD(EVERY NIGHT)

REACTIONS (3)
  - Liver disorder [Recovering/Resolving]
  - Lethargy [Recovering/Resolving]
  - Paracentesis [Recovering/Resolving]
